FAERS Safety Report 12541391 (Version 2)
Quarter: 2016Q3

REPORT INFORMATION
  Report Type: Spontaneous
  Country: GB (occurrence: GB)
  Receive Date: 20160708
  Receipt Date: 20160729
  Transmission Date: 20161109
  Serious: Yes (Other)
  Sender: FDA-Public Use
  Company Number: GB-TEVA-673526ACC

PATIENT
  Age: 27 Year
  Sex: Female

DRUGS (10)
  1. PAROXETINE. [Suspect]
     Active Substance: PAROXETINE
     Indication: DEPRESSION
     Dosage: 20 MILLIGRAM DAILY;
     Route: 048
     Dates: start: 19991014
  2. SEROXAT [Suspect]
     Active Substance: PAROXETINE HYDROCHLORIDE
     Indication: DEPRESSION
     Dosage: 40 MILLIGRAM DAILY;
     Route: 048
     Dates: start: 19990809
  3. DIAZEPAM. [Concomitant]
     Active Substance: DIAZEPAM
     Indication: PRODUCT USED FOR UNKNOWN INDICATION
     Route: 065
     Dates: start: 20021226
  4. PAXIL [Suspect]
     Active Substance: PAROXETINE HYDROCHLORIDE
     Indication: ANXIETY
     Route: 065
  5. PAXIL [Suspect]
     Active Substance: PAROXETINE HYDROCHLORIDE
     Indication: DEPRESSION
     Dosage: 40 MILLIGRAM DAILY;
     Route: 048
     Dates: start: 19990809
  6. PAXIL [Suspect]
     Active Substance: PAROXETINE HYDROCHLORIDE
  7. PAROXETINE. [Suspect]
     Active Substance: PAROXETINE
     Indication: ANXIETY
     Route: 048
  8. SEROXAT [Suspect]
     Active Substance: PAROXETINE HYDROCHLORIDE
     Indication: DEPRESSED MOOD
  9. SEROXAT [Suspect]
     Active Substance: PAROXETINE HYDROCHLORIDE
     Indication: ANXIETY
     Route: 048
     Dates: start: 199904, end: 200302
  10. PAXIL [Suspect]
     Active Substance: PAROXETINE HYDROCHLORIDE
     Route: 048
     Dates: start: 199904, end: 200302

REACTIONS (21)
  - Agoraphobia [Unknown]
  - Dizziness [Unknown]
  - Anxiety [Unknown]
  - Palpitations [Unknown]
  - Depressed mood [Unknown]
  - Panic attack [Unknown]
  - Chloasma [Unknown]
  - Aggression [Unknown]
  - Stress [Unknown]
  - Dyspnoea [Unknown]
  - Paranoia [Unknown]
  - Depression [Unknown]
  - Drug withdrawal syndrome [Unknown]
  - Fatigue [Unknown]
  - Claustrophobia [Unknown]
  - Immune system disorder [Unknown]
  - Suicidal behaviour [Unknown]
  - Memory impairment [Unknown]
  - Headache [Unknown]
  - Syncope [Unknown]
  - Chest pain [Unknown]

NARRATIVE: CASE EVENT DATE: 19991014
